FAERS Safety Report 5661432-7 (Version None)
Quarter: 2008Q1

REPORT INFORMATION
  Report Type: 
  Country: None (occurrence: None)
  Receive Date: 20080311
  Receipt Date: 20080304
  Transmission Date: 20080703
  Serious: No
  Sender: FDA-Public Use
  Company Number: US-BAXTER-2008BH001919

PATIENT
  Age: 52 Year
  Sex: Male
  Weight: 95 kg

DRUGS (2)
  1. HEPARIN SODIUM [Suspect]
     Indication: THROMBOSIS PROPHYLAXIS
     Dosage: DOSE UNIT:UNKNOWN
     Route: 010
     Dates: start: 20071218
  2. DIPHENHYDRAMINE HCL [Concomitant]
     Indication: DRUG USE FOR UNKNOWN INDICATION
     Route: 065

REACTIONS (2)
  - PRURITUS [None]
  - URTICARIA [None]
